FAERS Safety Report 20684273 (Version 1)
Quarter: 2022Q2

REPORT INFORMATION
  Report Type: Spontaneous
  Country: US (occurrence: None)
  Receive Date: 20220405
  Receipt Date: 20220405
  Transmission Date: 20220721
  Serious: No
  Sender: FDA-Public Use
  Company Number: None

PATIENT
  Age: 49 Year
  Sex: Female

DRUGS (1)
  1. ENTYVIO [Suspect]
     Active Substance: VEDOLIZUMAB
     Dosage: OTHER FREQUENCY : OTHER;?
     Route: 042
     Dates: start: 201911

REACTIONS (1)
  - Kidney infection [None]

NARRATIVE: CASE EVENT DATE: 20220201
